FAERS Safety Report 25125643 (Version 3)
Quarter: 2025Q3

REPORT INFORMATION
  Report Type: Spontaneous
  Country: US (occurrence: US)
  Receive Date: 20250326
  Receipt Date: 20250927
  Transmission Date: 20251020
  Serious: Yes (Hospitalization, Other)
  Sender: SANOFI AVENTIS
  Company Number: US-SA-2025SA087119

PATIENT
  Age: 87 Year
  Sex: Female
  Weight: 94.5 kg

DRUGS (2)
  1. DUPIXENT [Suspect]
     Active Substance: DUPILUMAB
     Indication: Asthma
     Dosage: 300 MG, QOW
     Route: 058
     Dates: end: 20250828
  2. PREDNISONE [Concomitant]
     Active Substance: PREDNISONE
     Dosage: 15 MG, QD

REACTIONS (6)
  - Hip fracture [Unknown]
  - Fall [Unknown]
  - Nausea [Unknown]
  - Asthenia [Unknown]
  - Vomiting [Unknown]
  - Hospitalisation [Unknown]

NARRATIVE: CASE EVENT DATE: 20250101
